FAERS Safety Report 13681050 (Version 1)
Quarter: 2017Q2

REPORT INFORMATION
  Report Type: Spontaneous
  Country: US (occurrence: US)
  Receive Date: 20170623
  Receipt Date: 20170623
  Transmission Date: 20170830
  Serious: No
  Sender: FDA-Public Use
  Company Number: US-TEVA-728080ACC

PATIENT
  Age: 74 Year
  Sex: Female
  Weight: 80.81 kg

DRUGS (1)
  1. FINASTERIDE. [Suspect]
     Active Substance: FINASTERIDE
     Indication: ALOPECIA

REACTIONS (2)
  - Rash [Recovering/Resolving]
  - Folliculitis [Recovering/Resolving]

NARRATIVE: CASE EVENT DATE: 201609
